FAERS Safety Report 13126109 (Version 1)
Quarter: 2017Q1

REPORT INFORMATION
  Report Type: Spontaneous
  Country: US (occurrence: US)
  Receive Date: 20170118
  Receipt Date: 20170118
  Transmission Date: 20170428
  Serious: No
  Sender: FDA-Public Use
  Company Number: US-EISAI MEDICAL RESEARCH-EC-2017-023907

PATIENT
  Sex: Male

DRUGS (1)
  1. ACIPHEX [Suspect]
     Active Substance: RABEPRAZOLE SODIUM
     Indication: OESOPHAGEAL DISORDER
     Route: 048
     Dates: start: 2015

REACTIONS (2)
  - Memory impairment [Unknown]
  - Eructation [Unknown]
